FAERS Safety Report 5034704-7 (Version None)
Quarter: 2006Q2

REPORT INFORMATION
  Report Type: 
  Country: None (occurrence: None)
  Receive Date: 20060621
  Receipt Date: 20060612
  Transmission Date: 20061013
  Serious: Yes (Hospitalization)
  Sender: FDA-Public Use
  Company Number: 200614142BWH

PATIENT
  Age: 76 Year
  Sex: Female
  Weight: 57.3347 kg

DRUGS (1)
  1. SORAFENIB [Suspect]
     Indication: METASTATIC MALIGNANT MELANOMA
     Dosage: 400 MG, BID, ORAL
     Route: 048
     Dates: start: 20060519, end: 20060609

REACTIONS (3)
  - BRAIN MASS [None]
  - CONVULSION [None]
  - LOSS OF CONSCIOUSNESS [None]
